FAERS Safety Report 5763268-5 (Version None)
Quarter: 2008Q2

REPORT INFORMATION
  Report Type: 
  Country: None (occurrence: None)
  Receive Date: 20080604
  Receipt Date: 20080604
  Transmission Date: 20081010
  Serious: No
  Sender: FDA-Public Use
  Company Number: None

PATIENT
  Age: 50 Year
  Sex: Female
  Weight: 70.7611 kg

DRUGS (1)
  1. CHANTIX [Suspect]

REACTIONS (10)
  - ANGER [None]
  - CRYING [None]
  - DEPRESSION [None]
  - FOOD CRAVING [None]
  - HAIR TEXTURE ABNORMAL [None]
  - HYPERPHAGIA [None]
  - NAIL DISORDER [None]
  - ONYCHOCLASIS [None]
  - SOMNOLENCE [None]
  - TRICHORRHEXIS [None]
